FAERS Safety Report 9164590 (Version 2)
Quarter: 2013Q3

REPORT INFORMATION
  Report Type: Spontaneous
  Country: JP (occurrence: JP)
  Receive Date: 20130315
  Receipt Date: 20130712
  Transmission Date: 20140515
  Serious: Yes (Death, Other)
  Sender: FDA-Public Use
  Company Number: PHHY2013JP024221

PATIENT
  Age: 73 Year
  Sex: Male

DRUGS (2)
  1. ZOMETA [Suspect]
     Indication: METASTASES TO BONE
     Dosage: UNK UKN, EVERY 4 WEEKS
     Dates: start: 200811
  2. PACLITAXEL [Suspect]
     Indication: ANGIOSARCOMA
     Dosage: 80 MG/M2, ON DAYS 1, 8 AND 15 EVERY 4 WEEKS
     Dates: start: 200811

REACTIONS (5)
  - Colon cancer [Fatal]
  - Malignant neoplasm progression [Fatal]
  - Bone lesion [Not Recovered/Not Resolved]
  - Palmar-plantar erythrodysaesthesia syndrome [Unknown]
  - Neutropenia [Unknown]
